FAERS Safety Report 5824511-7 (Version None)
Quarter: 2008Q3

REPORT INFORMATION
  Report Type: 
  Country: None (occurrence: None)
  Receive Date: 20080728
  Receipt Date: 20080715
  Transmission Date: 20090109
  Serious: Yes (Death, Hospitalization, Other)
  Sender: FDA-Public Use
  Company Number: IL-TEVA-169842ISR

PATIENT
  Age: 44 Year
  Sex: Male

DRUGS (5)
  1. COPAXONE [Suspect]
     Indication: MULTIPLE SCLEROSIS
     Route: 058
     Dates: start: 20040113, end: 20080330
  2. ONDANSETRON [Suspect]
     Indication: VOMITING
     Route: 048
     Dates: start: 20080626, end: 20080626
  3. METFORMIN HYDROCHLORIDE [Concomitant]
     Route: 048
  4. REPAGLINIDE [Concomitant]
     Route: 048
  5. CILAZAPRIL [Concomitant]
     Route: 048

REACTIONS (3)
  - GASTROINTESTINAL HAEMORRHAGE [None]
  - HEPATIC ENCEPHALOPATHY [None]
  - HEPATIC NEOPLASM MALIGNANT [None]
